FAERS Safety Report 8829632 (Version 1)
Quarter: 2012Q4

REPORT INFORMATION
  Report Type: 
  Country: US (occurrence: US)
  Receive Date: 20121008
  Receipt Date: 20121008
  Transmission Date: 20130627
  Serious: Yes (Death, Other)
  Sender: FDA-Public Use
  Company Number: US-ROCHE-1123635

PATIENT
  Sex: Male

DRUGS (6)
  1. RITUXAN [Suspect]
     Indication: CHRONIC LYMPHOCYTIC LEUKAEMIA
     Route: 065
  2. RITUXAN [Suspect]
     Indication: HYPOGAMMAGLOBULINAEMIA
  3. DIFLUCAN [Concomitant]
  4. ACYCLOVIR [Concomitant]
  5. TOBRAMYCIN [Concomitant]
     Route: 065
     Dates: start: 20020328
  6. VANCOMYCIN [Concomitant]

REACTIONS (3)
  - Death [Fatal]
  - Pneumonia [Unknown]
  - Dysphagia [Unknown]
